FAERS Safety Report 11936153 (Version 2)
Quarter: 2016Q3

REPORT INFORMATION
  Report Type: Report from Study
  Country: US (occurrence: US)
  Receive Date: 20160121
  Receipt Date: 20160726
  Transmission Date: 20161109
  Serious: No
  Sender: FDA-Public Use
  Company Number: US-AMGEN-USASL2016000634

PATIENT
  Age: 56 Year
  Sex: Female

DRUGS (7)
  1. KYPROLIS [Suspect]
     Active Substance: CARFILZOMIB
     Dosage: 30 MG/M2, TWICE WEEKLY
     Route: 065
  2. DEXAMETHASONE. [Concomitant]
     Active Substance: DEXAMETHASONE
     Dosage: 20 MG, UNK
  3. REVLIMID [Concomitant]
     Active Substance: LENALIDOMIDE
     Dosage: 15 MG, QD
  4. DEXAMETHASONE. [Concomitant]
     Active Substance: DEXAMETHASONE
     Dosage: 4 MG, ON DAYS THAT PATIENT RECEIVES KYPROLIS THERAPY
  5. KYPROLIS [Suspect]
     Active Substance: CARFILZOMIB
     Indication: PLASMA CELL MYELOMA
     Dosage: UNK
     Route: 065
     Dates: start: 20151026
  6. KYPROLIS [Suspect]
     Active Substance: CARFILZOMIB
     Dosage: 20 MG/M2, UNK
     Route: 065
  7. DEXAMETHASONE. [Concomitant]
     Active Substance: DEXAMETHASONE
     Dosage: UNK

REACTIONS (10)
  - Cognitive disorder [Unknown]
  - Feeling abnormal [Unknown]
  - General physical health deterioration [Recovered/Resolved]
  - Nasopharyngitis [Unknown]
  - Adverse drug reaction [Unknown]
  - Pruritus [Unknown]
  - Fatigue [Unknown]
  - Asthenia [Unknown]
  - Light chain analysis increased [Unknown]
  - Fungal infection [Unknown]

NARRATIVE: CASE EVENT DATE: 20151221
